FAERS Safety Report 9203341 (Version 1)
Quarter: 2013Q2

REPORT INFORMATION
  Report Type: Spontaneous
  Country: US (occurrence: US)
  Receive Date: 20130402
  Receipt Date: 20130402
  Transmission Date: 20140414
  Serious: Yes (Other)
  Sender: FDA-Public Use
  Company Number: US-JNJFOC-20130316993

PATIENT
  Age: 70 Year
  Sex: Female

DRUGS (1)
  1. EXTRA STRENGTH TYLENOL [Suspect]
     Indication: ARTHRALGIA
     Dosage: FOR YEARS
     Route: 048

REACTIONS (4)
  - Dizziness [Recovered/Resolved]
  - Burning sensation [Recovered/Resolved]
  - Hyperhidrosis [Recovered/Resolved]
  - Abdominal pain upper [Recovered/Resolved]
